FAERS Safety Report 6069137-8 (Version None)
Quarter: 2009Q1

REPORT INFORMATION
  Report Type: 
  Country: None (occurrence: None)
  Receive Date: 20090206
  Receipt Date: 20090130
  Transmission Date: 20090719
  Serious: Yes (Hospitalization, Other)
  Sender: FDA-Public Use
  Company Number: US-ELI_LILLY_AND_COMPANY-US200901005624

PATIENT
  Sex: Female

DRUGS (2)
  1. HUMULIN R [Suspect]
  2. HUMULIN N [Suspect]

REACTIONS (11)
  - ABDOMINAL DISCOMFORT [None]
  - ACCIDENT [None]
  - BLINDNESS [None]
  - BLOOD GLUCOSE DECREASED [None]
  - BLOOD GLUCOSE INCREASED [None]
  - DIZZINESS [None]
  - HYPERHIDROSIS [None]
  - LOCALISED INFECTION [None]
  - LOWER LIMB FRACTURE [None]
  - VISUAL ACUITY REDUCED [None]
  - VISUAL FIELD DEFECT [None]
